FAERS Safety Report 4847745-7 (Version None)
Quarter: 2005Q4

REPORT INFORMATION
  Report Type: 
  Country: None (occurrence: None)
  Receive Date: 20051207
  Receipt Date: 20051205
  Transmission Date: 20060501
  Serious: Yes (Hospitalization)
  Sender: FDA-Public Use
  Company Number: FR-MERCK-0512FRA00012

PATIENT
  Age: 87 Year
  Sex: Female

DRUGS (4)
  1. PRIMAXIN [Suspect]
     Indication: URINARY TRACT INFECTION
     Route: 030
     Dates: start: 20051022, end: 20051104
  2. BINEDALINE HYDROCHLORIDE [Concomitant]
     Route: 048
     Dates: start: 20050901
  3. PAROXETINE HYDROCHLORIDE [Concomitant]
     Indication: DEPRESSION
     Route: 048
     Dates: start: 20050926, end: 20051104
  4. GENTAMICIN [Concomitant]
     Route: 065
     Dates: start: 20051023, end: 20051025

REACTIONS (3)
  - DISTURBANCE IN ATTENTION [None]
  - ENCEPHALOPATHY [None]
  - MYOCLONUS [None]
